FAERS Safety Report 9044976 (Version 1)
Quarter: 2013Q1

REPORT INFORMATION
  Report Type: Report from Study
  Country: US (occurrence: US)
  Receive Date: 20130130
  Receipt Date: 20130130
  Transmission Date: 20140127
  Serious: No
  Sender: FDA-Public Use
  Company Number: US-ABBOTT-12P-163-0960262-00

PATIENT
  Sex: Female

DRUGS (12)
  1. HUMIRA 40 MG/0.8 ML PEN [Suspect]
     Indication: PSORIATIC ARTHROPATHY
     Route: 058
     Dates: start: 2009
  2. CENTRUM SILVER [Concomitant]
     Indication: PRODUCT USED FOR UNKNOWN INDICATION
  3. CIPRODEX [Concomitant]
     Indication: PRODUCT USED FOR UNKNOWN INDICATION
     Dosage: EAR DROPS
  4. DESONIDE [Concomitant]
     Indication: PRODUCT USED FOR UNKNOWN INDICATION
  5. ELIDEL [Concomitant]
     Indication: PRODUCT USED FOR UNKNOWN INDICATION
  6. EUCERIN [Concomitant]
     Indication: PRODUCT USED FOR UNKNOWN INDICATION
  7. NAPROXEN [Concomitant]
     Indication: PRODUCT USED FOR UNKNOWN INDICATION
  8. OMEPRAZOLE [Concomitant]
     Indication: PRODUCT USED FOR UNKNOWN INDICATION
  9. OPTIVE [Concomitant]
     Indication: PRODUCT USED FOR UNKNOWN INDICATION
     Route: 047
  10. SIMVASTATIN [Concomitant]
     Indication: PRODUCT USED FOR UNKNOWN INDICATION
  11. TOBRADEX [Concomitant]
     Indication: PRODUCT USED FOR UNKNOWN INDICATION
  12. TRIAMCINOLON [Concomitant]
     Indication: PRODUCT USED FOR UNKNOWN INDICATION

REACTIONS (2)
  - Dry eye [Not Recovered/Not Resolved]
  - Corneal irritation [Recovered/Resolved]
